FAERS Safety Report 7776326-0 (Version None)
Quarter: 2011Q3

REPORT INFORMATION
  Report Type: 
  Country: None (occurrence: None)
  Receive Date: 20110921
  Receipt Date: 20110921
  Transmission Date: 20111222
  Serious: No
  Sender: FDA-Public Use
  Company Number: None

PATIENT
  Sex: Male

DRUGS (1)
  1. RISPERIDONE [Suspect]
     Dosage: 2MG PO 1 DOSE ONLY
     Route: 048

REACTIONS (1)
  - OROMANDIBULAR DYSTONIA [None]
